FAERS Safety Report 5193678-9 (Version None)
Quarter: 2006Q4

REPORT INFORMATION
  Report Type: 
  Country: None (occurrence: None)
  Receive Date: 20061221
  Receipt Date: 20061214
  Transmission Date: 20070319
  Serious: Yes (Other)
  Sender: FDA-Public Use
  Company Number: 3532

PATIENT
  Age: 19 Year
  Sex: Female
  Weight: 62.5964 kg

DRUGS (1)
  1. AMNESTEEM [Suspect]
     Indication: ACNE
     Dosage: 80 MG, PO
     Route: 048
     Dates: start: 20060818, end: 20061019

REACTIONS (1)
  - HALLUCINATION, VISUAL [None]
